FAERS Safety Report 9503815 (Version 4)
Quarter: 2013Q4

REPORT INFORMATION
  Report Type: Spontaneous
  Country: US (occurrence: US)
  Receive Date: 20130906
  Receipt Date: 20131025
  Transmission Date: 20140711
  Serious: No
  Sender: FDA-Public Use
  Company Number: US-JNJFOC-20130901910

PATIENT
  Sex: Male
  Weight: 108.14 kg

DRUGS (3)
  1. INVEGA SUSTENNA [Suspect]
     Indication: SCHIZOPHRENIA
     Route: 030
     Dates: start: 2012
  2. AMLODIPINE [Concomitant]
     Indication: HYPERTENSION
     Dates: start: 20130304
  3. OXYBUTYNIN [Concomitant]
     Indication: POLLAKIURIA

REACTIONS (3)
  - Erectile dysfunction [Not Recovered/Not Resolved]
  - Pollakiuria [Not Recovered/Not Resolved]
  - Drug ineffective [Unknown]
